FAERS Safety Report 5708516-2 (Version None)
Quarter: 2008Q2

REPORT INFORMATION
  Report Type: 
  Country: None (occurrence: None)
  Receive Date: 20080417
  Receipt Date: 20080207
  Transmission Date: 20081010
  Serious: Yes (Other)
  Sender: FDA-Public Use
  Company Number: US-BRISTOL-MYERS SQUIBB COMPANY-14068845

PATIENT
  Age: 69 Year
  Sex: Female
  Weight: 59 kg

DRUGS (6)
  1. ERBITUX [Suspect]
     Indication: NON-SMALL CELL LUNG CANCER
     Dosage: COMPLETION OF STUDY WAS 23-JAN-07 (APPROXIMATELY 24 INFUSIONS)
     Dates: end: 20070123
  2. TAXOL [Suspect]
     Indication: NON-SMALL CELL LUNG CANCER
  3. CARBOPLATIN [Suspect]
     Indication: NON-SMALL CELL LUNG CANCER
  4. PEPCID [Concomitant]
  5. RADIATION THERAPY [Concomitant]
  6. SYNTHROID [Concomitant]

REACTIONS (2)
  - RASH [None]
  - SWELLING FACE [None]
